FAERS Safety Report 4380647-1 (Version None)
Quarter: 2004Q2

REPORT INFORMATION
  Report Type: 
  Country: None (occurrence: None)
  Receive Date: 20040616
  Receipt Date: 20040527
  Transmission Date: 20050107
  Serious: Yes (Other)
  Sender: FDA-Public Use
  Company Number: CA_040206648

PATIENT
  Sex: Female

DRUGS (6)
  1. HUMALOG [Suspect]
     Indication: DIABETES MELLITUS
  2. HUMULIN N [Suspect]
     Indication: DIABETES MELLITUS
  3. METFORMIN HCL [Concomitant]
  4. ADALAT [Concomitant]
  5. SPIRONOLACTONE [Concomitant]
  6. PRAVASTATIN [Concomitant]

REACTIONS (3)
  - BLOOD GLUCOSE INCREASED [None]
  - PHARMACEUTICAL PRODUCT COMPLAINT [None]
  - PITUITARY-DEPENDENT CUSHING'S SYNDROME [None]
